FAERS Safety Report 17423531 (Version 1)
Quarter: 2020Q1

REPORT INFORMATION
  Report Type: Spontaneous
  Country: US (occurrence: US)
  Receive Date: 20200131
  Receipt Date: 20200131
  Transmission Date: 20200409
  Serious: No
  Sender: FDA-Public Use
  Company Number: None

PATIENT
  Sex: Female

DRUGS (1)
  1. TRAMADOL. [Suspect]
     Active Substance: TRAMADOL

REACTIONS (10)
  - Back pain [None]
  - Discomfort [None]
  - Depression [None]
  - Drug dispensed to wrong patient [None]
  - Insomnia [None]
  - Condition aggravated [None]
  - Transcription medication error [None]
  - Irritability [None]
  - Drug ineffective [None]
  - Neuralgia [None]
